FAERS Safety Report 22589621 (Version 1)
Quarter: 2023Q2

REPORT INFORMATION
  Report Type: Spontaneous
  Country: CN (occurrence: CN)
  Receive Date: 20230612
  Receipt Date: 20230612
  Transmission Date: 20230721
  Serious: Yes (Life-Threatening, Other)
  Sender: FDA-Public Use
  Company Number: CN-PFIZER INC-PV202300100919

PATIENT
  Age: 25 Year
  Sex: Female
  Weight: 51 kg

DRUGS (5)
  1. LINEZOLID [Suspect]
     Active Substance: LINEZOLID
     Indication: Meningitis tuberculous
     Dosage: 0.6 G, 2X/DAY
     Route: 048
     Dates: start: 20230519, end: 20230523
  2. LEVOFLOXACIN [Suspect]
     Active Substance: LEVOFLOXACIN
     Indication: Meningitis tuberculous
     Dosage: 0.5 G, 1X/DAY
     Route: 041
     Dates: start: 20230519, end: 20230605
  3. CYCLOSERINE [Suspect]
     Active Substance: CYCLOSERINE
     Indication: Meningitis tuberculous
     Dosage: 250 MG, 2X/DAY
     Route: 048
     Dates: start: 20230519, end: 20230522
  4. PYRAZINAMIDE [Concomitant]
     Active Substance: PYRAZINAMIDE
     Indication: Meningitis tuberculous
     Dosage: 1.5 G, 1X/DAY
     Route: 048
     Dates: start: 20230519, end: 20230605
  5. AMIKACIN SULFATE [Concomitant]
     Active Substance: AMIKACIN SULFATE
     Indication: Meningitis tuberculous
     Dosage: 0.6 G, 1X/DAY
     Route: 041
     Dates: start: 20230519, end: 20230605

REACTIONS (4)
  - Bradycardia [Recovered/Resolved]
  - Temperature intolerance [Unknown]
  - Pyrexia [Unknown]
  - Off label use [Unknown]

NARRATIVE: CASE EVENT DATE: 20230519
